FAERS Safety Report 7369351-5 (Version None)
Quarter: 2011Q1

REPORT INFORMATION
  Report Type: 
  Country: None (occurrence: None)
  Receive Date: 20110323
  Receipt Date: 20110318
  Transmission Date: 20110831
  Serious: Yes (Other)
  Sender: FDA-Public Use
  Company Number: AU-ROCHE-766382

PATIENT
  Sex: Female

DRUGS (2)
  1. GLEEVEC [Suspect]
     Dosage: DOSE AND FREQUENCY: UNKNOWN
     Route: 048
     Dates: end: 20080401
  2. INTERFERON ALFA-2A [Suspect]
     Dosage: DOSE AND FREQUENCY: NOT REPORETED
     Route: 065
     Dates: start: 20080804, end: 20101015

REACTIONS (1)
  - GESTATIONAL DIABETES [None]
